FAERS Safety Report 7421309-3 (Version None)
Quarter: 2011Q2

REPORT INFORMATION
  Report Type: 
  Country: None (occurrence: None)
  Receive Date: 20110418
  Receipt Date: 20110405
  Transmission Date: 20111010
  Serious: Yes (Other)
  Sender: FDA-Public Use
  Company Number: ES-JNJFOC-20110309450

PATIENT
  Age: 70 Year
  Sex: Female

DRUGS (2)
  1. REMICADE [Suspect]
     Indication: RHEUMATOID ARTHRITIS
     Route: 042
  2. REMICADE [Suspect]
     Route: 042

REACTIONS (9)
  - SKIN LESION [None]
  - VISION BLURRED [None]
  - NAUSEA [None]
  - ARTHRALGIA [None]
  - RASH [None]
  - ABDOMINAL PAIN [None]
  - DIPLOPIA [None]
  - HYPERSENSITIVITY [None]
  - PRODUCT CONTAINER ISSUE [None]
